FAERS Safety Report 8037578-5 (Version None)
Quarter: 2012Q1

REPORT INFORMATION
  Report Type: 
  Country: None (occurrence: None)
  Receive Date: 20120111
  Receipt Date: 20120109
  Transmission Date: 20120608
  Serious: No
  Sender: FDA-Public Use
  Company Number: US-BAYER-2012-003013

PATIENT
  Sex: Male

DRUGS (9)
  1. OSTEOMATRIX [Concomitant]
  2. MULTIVITAMIN PREPARATION + MINERAL SUPPLEMENT [Concomitant]
  3. VITAMIN C [Concomitant]
  4. VITAMIN D [Concomitant]
  5. SIMVASTATIN [Concomitant]
  6. VITAMIN B COMPLEX CAP [Concomitant]
  7. STAXYN [Suspect]
     Indication: ERECTILE DYSFUNCTION
     Dosage: 10 MG, PRN
  8. STAXYN [Suspect]
     Dosage: 10 MG, PRN
  9. VITAMIN E [Concomitant]

REACTIONS (1)
  - ERECTILE DYSFUNCTION [None]
